FAERS Safety Report 8346443-5 (Version None)
Quarter: 2012Q2

REPORT INFORMATION
  Report Type: 
  Country: None (occurrence: None)
  Receive Date: 20120509
  Receipt Date: 20120507
  Transmission Date: 20120825
  Serious: Yes (Hospitalization)
  Sender: FDA-Public Use
  Company Number: US-PFIZER INC-2012111196

PATIENT
  Sex: Female
  Weight: 113.4 kg

DRUGS (8)
  1. BETAPACE [Concomitant]
     Dosage: 120 MG, 2X/DAY
  2. BENAZEPRIL [Concomitant]
     Dosage: UNK, DAILY
  3. POTASSIUM [Concomitant]
     Dosage: 10 MG,DAILY
  4. COUMADIN [Suspect]
     Indication: ANTICOAGULANT THERAPY
     Dosage: UNK
     Dates: start: 20040101
  5. CELEBREX [Suspect]
     Indication: ARTHRITIS
     Dosage: 200 MG, 2X/DAY
     Route: 048
     Dates: start: 20000101
  6. ACETYLSALICYLIC ACID [Concomitant]
     Indication: ANTICOAGULANT THERAPY
     Dosage: 81 MG, DAILY
  7. CELEBREX [Suspect]
     Dosage: 200 MG, 2X/DAY
     Route: 048
     Dates: start: 20120101
  8. NORVASC [Concomitant]
     Dosage: 40 MG,DAILY

REACTIONS (1)
  - CARDIAC FIBRILLATION [None]
